FAERS Safety Report 4603984-1 (Version None)
Quarter: 2005Q1

REPORT INFORMATION
  Report Type: 
  Country: None (occurrence: None)
  Receive Date: 20050310
  Receipt Date: 20041029
  Transmission Date: 20050727
  Serious: Yes (Other)
  Sender: FDA-Public Use
  Company Number: BR-GLAXOSMITHKLINE-A0532743A

PATIENT
  Age: 54 Year
  Sex: Male
  Weight: 102 kg

DRUGS (3)
  1. NIQUITIN [Suspect]
     Indication: SMOKING CESSATION THERAPY
     Dosage: 21MG UNKNOWN
     Route: 062
  2. AMLODIPINE [Concomitant]
  3. ENALAPRIL [Concomitant]

REACTIONS (4)
  - DIZZINESS [None]
  - FEELING ABNORMAL [None]
  - HALLUCINATION [None]
  - INSOMNIA [None]
